FAERS Safety Report 18903170 (Version 1)
Quarter: 2021Q1

REPORT INFORMATION
  Report Type: Spontaneous
  Country: US (occurrence: US)
  Receive Date: 20210212
  Receipt Date: 20210212
  Transmission Date: 20210420
  Serious: Yes (Other)
  Sender: FDA-Public Use
  Company Number: None

PATIENT
  Age: 79 Year
  Sex: Female
  Weight: 47.63 kg

DRUGS (6)
  1. VIT B [Concomitant]
     Active Substance: VITAMIN B
  2. PROBIOTICS [Concomitant]
     Active Substance: PROBIOTICS NOS
  3. CEPHALEXIN 500MG CAPSULES [Suspect]
     Active Substance: CEPHALEXIN
     Indication: URINARY TRACT INFECTION
     Dosage: ?          QUANTITY:1 DF DOSAGE FORM;?
     Route: 048
     Dates: start: 20200908, end: 20200915
  4. 1 A DAY VITAMIN [Concomitant]
     Active Substance: VITAMINS
  5. VIT D [Concomitant]
     Active Substance: VITAMIN D NOS
  6. VITAMIN C [Concomitant]
     Active Substance: ASCORBIC ACID

REACTIONS (4)
  - Atrial fibrillation [None]
  - Drug ineffective [None]
  - Urinary tract infection [None]
  - Stress [None]

NARRATIVE: CASE EVENT DATE: 20200908
